FAERS Safety Report 18131158 (Version 2)
Quarter: 2022Q3

REPORT INFORMATION
  Report Type: Spontaneous
  Country: JP (occurrence: JP)
  Receive Date: 20200810
  Receipt Date: 20220816
  Transmission Date: 20221027
  Serious: No
  Sender: FDA-Public Use
  Company Number: JP-ELI_LILLY_AND_COMPANY-JP201905015239

PATIENT
  Age: 44 Year
  Sex: Female
  Weight: 60 kg

DRUGS (38)
  1. ADCIRCA [Suspect]
     Active Substance: TADALAFIL
     Indication: Pulmonary arterial hypertension
     Dosage: 20 MG, DAILY
     Route: 048
     Dates: start: 20140314, end: 20180920
  2. ADCIRCA [Suspect]
     Active Substance: TADALAFIL
     Dosage: 20 MG, DAILY
     Route: 048
     Dates: start: 20181001
  3. UPTRAVI [Suspect]
     Active Substance: SELEXIPAG
     Indication: Pulmonary arterial hypertension
     Dosage: 0.2 MG, DAILY
     Route: 048
     Dates: start: 20170414, end: 20170511
  4. UPTRAVI [Suspect]
     Active Substance: SELEXIPAG
     Dosage: 0.2 MG, BID
     Route: 048
     Dates: start: 20170512, end: 20170607
  5. UPTRAVI [Suspect]
     Active Substance: SELEXIPAG
     Dosage: 0.6 MG, DAILY
     Route: 048
     Dates: start: 20170608, end: 20170803
  6. UPTRAVI [Suspect]
     Active Substance: SELEXIPAG
     Dosage: 0.4 MG, BID
     Route: 048
     Dates: start: 20170804, end: 20170905
  7. UPTRAVI [Suspect]
     Active Substance: SELEXIPAG
     Dosage: 1.2 MG, DAILY
     Route: 048
     Dates: start: 20170906, end: 20170910
  8. UPTRAVI [Suspect]
     Active Substance: SELEXIPAG
     Dosage: 1.4 MG, DAILY
     Route: 048
     Dates: start: 20170911, end: 20170913
  9. UPTRAVI [Suspect]
     Active Substance: SELEXIPAG
     Dosage: 0.8 MG, BID
     Route: 048
     Dates: start: 20170914, end: 20171214
  10. UPTRAVI [Suspect]
     Active Substance: SELEXIPAG
     Dosage: 1.8 MG, DAILY
     Route: 048
     Dates: start: 20171215, end: 20180114
  11. UPTRAVI [Suspect]
     Active Substance: SELEXIPAG
     Dosage: 1.2 MG, BID
     Route: 048
     Dates: start: 20180115, end: 20180422
  12. UPTRAVI [Suspect]
     Active Substance: SELEXIPAG
     Dosage: 1.3 MG, BID
     Route: 048
     Dates: start: 20180423
  13. UPTRAVI [Suspect]
     Active Substance: SELEXIPAG
     Dosage: 3.2 MG, DAILY
     Route: 048
     Dates: start: 20181022
  14. OPSUMIT [Suspect]
     Active Substance: MACITENTAN
     Indication: Pulmonary arterial hypertension
     Dosage: 10 MG, DAILY
     Route: 048
     Dates: start: 20170725
  15. AZOSEMIDE [Suspect]
     Active Substance: AZOSEMIDE
     Indication: Cardiac failure
     Dosage: 60 MG, DAILY
     Route: 048
  16. LASIX [Suspect]
     Active Substance: FUROSEMIDE
     Indication: Cardiac failure
     Dosage: 40 MG, DAILY
     Route: 048
  17. TORSEMIDE [Suspect]
     Active Substance: TORSEMIDE
     Indication: Product used for unknown indication
     Dosage: 8 MG, DAILY
     Route: 048
  18. WARFARIN [Concomitant]
     Active Substance: WARFARIN
     Indication: Product used for unknown indication
     Dosage: 3 MG, DAILY
     Dates: end: 20170913
  19. ETIZOLAM [Concomitant]
     Active Substance: ETIZOLAM
     Indication: Insomnia
     Dosage: 0.5 MG, DAILY
  20. BROTIZOLAM [Concomitant]
     Active Substance: BROTIZOLAM
     Indication: Insomnia
     Dosage: 0.25 MG, DAILY
  21. SPIRONOLACTONE [Concomitant]
     Active Substance: SPIRONOLACTONE
     Indication: Cardiac failure
     Dosage: 25 MG, DAILY
  22. FEBUXOSTAT [Concomitant]
     Active Substance: FEBUXOSTAT
     Indication: Hyperuricaemia
     Dosage: 10 MG, DAILY
  23. LANSOPRAZOLE [Concomitant]
     Active Substance: LANSOPRAZOLE
     Indication: Gastritis
     Dosage: 15 MG, DAILY
  24. SAMSCA [Concomitant]
     Active Substance: TOLVAPTAN
     Indication: Cardiac failure
     Dosage: 7.5 MG, DAILY
  25. GASMOTIN [MOSAPRIDE CITRATE] [Concomitant]
     Indication: Gastritis
     Dosage: 15 MG, DAILY
  26. BERAPROST SODIUM [Concomitant]
     Active Substance: BERAPROST SODIUM
     Indication: Pulmonary arterial hypertension
     Dosage: UNK
     Dates: start: 20161027
  27. ALLELOCK [Concomitant]
     Active Substance: OLOPATADINE HYDROCHLORIDE
     Indication: Pruritus
     Dosage: 5 MG, DAILY
  28. SLOW-K [Concomitant]
     Active Substance: POTASSIUM CHLORIDE
     Indication: Hypokalaemia
     Dosage: 1200 MG, DAILY
     Dates: start: 20170508
  29. FERROUS FUMARATE [Concomitant]
     Active Substance: FERROUS FUMARATE
     Indication: Iron deficiency anaemia
     Dosage: 100 MG, DAILY
     Route: 048
     Dates: start: 20170905, end: 20180701
  30. POTASSIUM GLUCONATE [Concomitant]
     Active Substance: POTASSIUM GLUCONATE
     Indication: Hypokalaemia
     Dosage: 6 G, DAILY
     Route: 048
     Dates: start: 20170915, end: 20170918
  31. PROTOPIC [Concomitant]
     Active Substance: TACROLIMUS
     Indication: Eczema
     Dosage: UNK
  32. RINDERON VG [Concomitant]
     Active Substance: BETAMETHASONE VALERATE\GENTAMICIN SULFATE
     Indication: Eczema
     Dosage: UNK
  33. KETOPROFEN [Concomitant]
     Active Substance: KETOPROFEN
     Indication: Arthralgia
     Dosage: UNK
  34. TREPROSTINIL [Concomitant]
     Active Substance: TREPROSTINIL
     Indication: Pulmonary arterial hypertension
     Dosage: UNK
     Dates: start: 20160424, end: 20180115
  35. HUMALOG [Concomitant]
     Active Substance: INSULIN LISPRO
     Indication: Diabetes mellitus
     Dosage: 48 INTERNATIONAL UNIT, DAILY
     Route: 065
  36. INSULIN GLARGINE [Concomitant]
     Active Substance: INSULIN GLARGINE
     Indication: Diabetes mellitus
     Dosage: 10 INTERNATIONAL UNIT, DAILY
  37. LEUPROLIDE ACETATE [Concomitant]
     Active Substance: LEUPROLIDE ACETATE
     Indication: Uterine leiomyoma
     Dosage: 1.88 MG, DAILY
     Dates: start: 20170913
  38. ADEMPAS [Concomitant]
     Active Substance: RIOCIGUAT
     Indication: Pulmonary arterial hypertension
     Dosage: UNK
     Dates: start: 20180921, end: 20180930

REACTIONS (13)
  - Atrioventricular block [Not Recovered/Not Resolved]
  - Iron deficiency anaemia [Recovered/Resolved]
  - Hypokalaemia [Recovered/Resolved]
  - Bradycardia [Not Recovered/Not Resolved]
  - Oedema [Recovering/Resolving]
  - Diarrhoea [Recovered/Resolved]
  - Arthralgia [Recovering/Resolving]
  - Trigger finger [Recovering/Resolving]
  - Headache [Not Recovered/Not Resolved]
  - Pain in extremity [Recovering/Resolving]
  - Dizziness [Recovering/Resolving]
  - Nasal congestion [Recovering/Resolving]
  - Nausea [Recovered/Resolved]

NARRATIVE: CASE EVENT DATE: 20170508
